FAERS Safety Report 23218276 (Version 1)
Quarter: 2023Q4

REPORT INFORMATION
  Report Type: Spontaneous
  Country: US (occurrence: None)
  Receive Date: 20231122
  Receipt Date: 20231122
  Transmission Date: 20240110
  Serious: No
  Sender: FDA-Public Use
  Company Number: None

PATIENT
  Age: 46 Year
  Sex: Female
  Weight: 53.07 kg

DRUGS (1)
  1. CLOFAZIMINE [Suspect]
     Active Substance: CLOFAZIMINE
     Indication: Disseminated mycobacterium avium complex infection
     Dosage: FREQUENCY : DAILY;?
     Route: 048
     Dates: start: 20221231

REACTIONS (3)
  - Fall [None]
  - Radius fracture [None]
  - Foot fracture [None]

NARRATIVE: CASE EVENT DATE: 20230806
